FAERS Safety Report 10377354 (Version 1)
Quarter: 2014Q3

REPORT INFORMATION
  Report Type: Spontaneous
  Country: JP (occurrence: JP)
  Receive Date: 20140812
  Receipt Date: 20140812
  Transmission Date: 20150326
  Serious: No
  Sender: FDA-Public Use
  Company Number: PHHY2011JP121928

PATIENT
  Age: 47 Year
  Sex: Male

DRUGS (5)
  1. SPRYCEL [Suspect]
     Active Substance: DASATINIB
     Dosage: 100 MG
     Dates: start: 201203
  2. TASIGNA [Suspect]
     Active Substance: NILOTINIB
     Dosage: 600 MG
     Dates: start: 201107, end: 201112
  3. TASIGNA [Suspect]
     Active Substance: NILOTINIB
     Dosage: 300 MG
     Dates: start: 201106
  4. SPRYCEL [Suspect]
     Active Substance: DASATINIB
     Dates: start: 201102, end: 201105
  5. TASIGNA [Suspect]
     Active Substance: NILOTINIB
     Indication: CHRONIC MYELOID LEUKAEMIA
     Dosage: 600 MG
     Dates: end: 201102

REACTIONS (3)
  - Blood bilirubin increased [Unknown]
  - Lipase increased [Unknown]
  - Blood glucose increased [Unknown]

NARRATIVE: CASE EVENT DATE: 201105
